FAERS Safety Report 9303283 (Version 1)
Quarter: 2013Q2

REPORT INFORMATION
  Report Type: Spontaneous
  Country: US (occurrence: US)
  Receive Date: 20130521
  Receipt Date: 20130521
  Transmission Date: 20140414
  Serious: Yes (Other)
  Sender: FDA-Public Use
  Company Number: US-RB-051218-13

PATIENT
  Age: 31 Year
  Sex: Female

DRUGS (3)
  1. SUBOXONE FILM [Suspect]
     Indication: DRUG DEPENDENCE
     Dosage: SUBOXONE FILM; TOOK A PIECE, THEN THE REST OF THE 8 MG DOSE
     Route: 060
     Dates: start: 20130306, end: 201303
  2. HEROIN [Suspect]
     Indication: SUBSTANCE USE
     Dosage: DOSING DETAILS UNKNOWN; AS NEEDED
     Route: 065
  3. TOBACCO [Concomitant]
     Indication: NICOTINE DEPENDENCE
     Dosage: 10 CIGARETTES DAILY
     Route: 055

REACTIONS (10)
  - Exposure during pregnancy [Recovered/Resolved]
  - Wrong technique in drug usage process [Recovered/Resolved]
  - Tremor [Recovered/Resolved]
  - Hyperhidrosis [Recovered/Resolved]
  - Formication [Recovered/Resolved]
  - Sneezing [Recovered/Resolved]
  - Lacrimation increased [Recovered/Resolved]
  - Anxiety [Recovered/Resolved]
  - Drug abuse [Recovered/Resolved]
  - Abortion spontaneous [Recovered/Resolved]
